FAERS Safety Report 9701465 (Version 1)
Quarter: 2013Q4

REPORT INFORMATION
  Report Type: Report from Study
  Country: IN (occurrence: IN)
  Receive Date: 20131121
  Receipt Date: 20131121
  Transmission Date: 20140711
  Serious: Yes (Other)
  Sender: FDA-Public Use
  Company Number: IN-ROCHE-1303437

PATIENT
  Sex: Male

DRUGS (2)
  1. RIBAVIRIN [Suspect]
     Indication: HEPATITIS C
     Dosage: DISCONTINUED AFTER 8 WEEKS
     Route: 048
     Dates: start: 20120313, end: 20120502
  2. PEGINTERFERON ALFA-2B [Suspect]
     Indication: HEPATITIS C
     Dosage: DISCONTINUED AFTER 8 WEEKS
     Route: 058
     Dates: start: 20120313, end: 20120502

REACTIONS (3)
  - Abdominal mass [Unknown]
  - Haemoglobin decreased [Unknown]
  - Depression [Unknown]
